FAERS Safety Report 9769302 (Version 3)
Quarter: 2014Q1

REPORT INFORMATION
  Report Type: Spontaneous
  Country: US (occurrence: US)
  Receive Date: 20131218
  Receipt Date: 20140116
  Transmission Date: 20141002
  Serious: Yes (Hospitalization, Other)
  Sender: FDA-Public Use
  Company Number: US-BEH-2012033796

PATIENT
  Age: 61 Year
  Sex: Female
  Weight: 54 kg

DRUGS (26)
  1. HIZENTRA [Suspect]
     Indication: CHRONIC INFLAMMATORY DEMYELINATING POLYRADICULONEUROPATHY
     Route: 058
     Dates: start: 20130626
  2. HIZENTRA [Suspect]
     Route: 058
     Dates: start: 20130626
  3. HIZENTRA [Suspect]
     Dosage: 2 GM 10 ML VIAL; 2-4 SITES OVER 1-2 HOURS
     Route: 058
     Dates: start: 20131103, end: 20131103
  4. HIZENTRA [Suspect]
     Dosage: 4 GM 20 ML VIAL;2-4 SITES OVER 1-2 HOURS
     Route: 058
     Dates: start: 20131103, end: 20131103
  5. HIZENTRA [Suspect]
     Dosage: 2 GM 10 ML VIAL; 2-4 SITES/1-2 HOURS
     Route: 058
     Dates: start: 20131202, end: 20131202
  6. HIZENTRA [Suspect]
     Dosage: 4 GM 20 ML VIAL;2-4 SITES/1-2 HOURS
     Route: 058
     Dates: start: 20131202, end: 20131202
  7. BENADRYL [Concomitant]
     Indication: PREMEDICATION
     Route: 042
  8. DECADRON [Concomitant]
     Indication: PREMEDICATION
  9. SOLU-MEDROL [Concomitant]
     Indication: PREMEDICATION
  10. ALKA-SELTZER [Concomitant]
     Indication: PREMEDICATION
  11. CYMBALTA [Concomitant]
  12. CETIRIZINE [Concomitant]
  13. CYANOCOBALAMIN [Concomitant]
  14. PROMETHAZINE [Concomitant]
  15. ACETAMINOPHEN [Concomitant]
  16. LIDOCAINE PRILOCAINE [Concomitant]
     Indication: PREMEDICATION
  17. EPI-PEN [Concomitant]
     Indication: PREMEDICATION
  18. ACIDOPHILUS [Concomitant]
  19. VITAMIN B COMPLEX [Concomitant]
  20. IRON [Concomitant]
  21. VITAMIN D3 [Concomitant]
  22. LEG-GESIC MULTI-MINERALS [Concomitant]
  23. MULTIVITAMIN MINERAL [Concomitant]
  24. ALPRAZOLAM [Concomitant]
  25. AMOXICILLIN [Concomitant]
  26. AZITHROMYCIN [Concomitant]

REACTIONS (12)
  - Chronic inflammatory demyelinating polyradiculoneuropathy [Unknown]
  - Condition aggravated [Unknown]
  - Meningitis aseptic [Unknown]
  - Headache [Unknown]
  - Nausea [Unknown]
  - Vomiting [Unknown]
  - Headache [Unknown]
  - Neck pain [Unknown]
  - Fatigue [Unknown]
  - Meningitis aseptic [Unknown]
  - Feeling abnormal [Not Recovered/Not Resolved]
  - Impaired work ability [Unknown]
